FAERS Safety Report 9235601 (Version 1)
Quarter: 2013Q1

REPORT INFORMATION
  Report Type: Spontaneous
  Country: US (occurrence: None)
  Receive Date: 20121031
  Receipt Date: 20121031
  Transmission Date: 20140127
  Serious: No
  Sender: FDA-Public Use
  Company Number: PHEH2012US016918

PATIENT
  Age: 51 Year
  Sex: Male

DRUGS (6)
  1. GILENYA (FTY)CAPSULE, 0.5MG [Suspect]
     Route: 048
     Dates: start: 201108
  2. BAYER ASPIRIN (ACETLYSALICYLIC ACID) [Concomitant]
  3. CENTRUM SILVER (ASCORBIC ACID, VITAMINS/MINERALS  NOS, RETINOL, TOCOPHERYL ACETATE, VITAMIN B NOS, VITAMINS NOS, ZINC) [Concomitant]
  4. AMLODIPINE (AMLODIPINE) [Concomitant]
  5. WATER PILLS (AMMONIUM CHLORIDE, CAFFEINE) [Concomitant]
  6. BACLOFEN (BACLOFEN) [Concomitant]

REACTIONS (4)
  - Chest discomfort [None]
  - Malaise [None]
  - Dyspnoea [None]
  - Headache [None]
